FAERS Safety Report 9437068 (Version 1)
Quarter: 2013Q3

REPORT INFORMATION
  Report Type: Spontaneous
  Country: AU (occurrence: AU)
  Receive Date: 20130802
  Receipt Date: 20130802
  Transmission Date: 20140515
  Serious: Yes (Other)
  Sender: FDA-Public Use
  Company Number: AU-PFIZER INC-2013221542

PATIENT
  Age: 50 Year
  Sex: Female

DRUGS (1)
  1. CHAMPIX [Suspect]
     Dosage: UNK

REACTIONS (17)
  - Psychotic disorder [Unknown]
  - Hallucination [Unknown]
  - Abnormal behaviour [Unknown]
  - Hypertension [Unknown]
  - Agitation [Unknown]
  - Anxiety [Unknown]
  - Ageusia [Unknown]
  - Thought blocking [Unknown]
  - Insomnia [Unknown]
  - Dyspnoea [Unknown]
  - Speech disorder [Unknown]
  - Feeling jittery [Unknown]
  - Dysphonia [Unknown]
  - Restlessness [Unknown]
  - Heart rate increased [Unknown]
  - Diarrhoea [Unknown]
  - Dysgeusia [Unknown]
